FAERS Safety Report 9418132 (Version 2)
Quarter: 2013Q3

REPORT INFORMATION
  Report Type: Report from Study
  Country: US (occurrence: US)
  Receive Date: 20130724
  Receipt Date: 20130816
  Transmission Date: 20140515
  Serious: Yes (Other)
  Sender: FDA-Public Use
  Company Number: US-ABBOTT-13P-163-1120666-00

PATIENT
  Sex: Female

DRUGS (3)
  1. HUMIRA [Suspect]
     Indication: RHEUMATOID ARTHRITIS
     Dates: start: 2003
  2. LIPITOR [Suspect]
     Indication: BLOOD CHOLESTEROL INCREASED
     Dates: start: 2005, end: 201306
  3. LISINOPRIL [Concomitant]
     Indication: HYPERTENSION

REACTIONS (15)
  - Eye pain [Not Recovered/Not Resolved]
  - Spinal disorder [Unknown]
  - Spinal cord compression [Recovered/Resolved]
  - Spinal disorder [Recovered/Resolved]
  - Spinal cord compression [Recovered/Resolved]
  - Low density lipoprotein decreased [Unknown]
  - Gait disturbance [Unknown]
  - Inappropriate schedule of drug administration [Unknown]
  - Malaise [Unknown]
  - Malaise [Unknown]
  - Feeling abnormal [Unknown]
  - Ophthalmic herpes zoster [Recovered/Resolved]
  - Blood cholesterol increased [Unknown]
  - Dyspnoea [Unknown]
  - Arthritis [Unknown]
